FAERS Safety Report 7710137-7 (Version None)
Quarter: 2011Q3

REPORT INFORMATION
  Report Type: 
  Country: None (occurrence: None)
  Receive Date: 20110825
  Receipt Date: 20110812
  Transmission Date: 20111222
  Serious: Yes (Hospitalization)
  Sender: FDA-Public Use
  Company Number: GB-CELGENEUS-CA033-11-0086

PATIENT
  Sex: Male
  Weight: 83.5 kg

DRUGS (3)
  1. AMITRIPTYLINE HCL [Concomitant]
     Route: 048
     Dates: start: 20110119
  2. ABRAXANE [Suspect]
     Indication: METASTATIC MALIGNANT MELANOMA
     Route: 065
     Dates: start: 20101110, end: 20110214
  3. CIPROFLOXACIN [Concomitant]
     Route: 048
     Dates: start: 20110123, end: 20110128

REACTIONS (1)
  - URINARY TRACT INFECTION [None]
